FAERS Safety Report 24365145 (Version 1)
Quarter: 2024Q3

REPORT INFORMATION
  Report Type: Spontaneous
  Country: US (occurrence: US)
  Receive Date: 20240926
  Receipt Date: 20240926
  Transmission Date: 20241016
  Serious: Yes (Other)
  Sender: APOTEX
  Company Number: US-APOTEX-2024AP011138

PATIENT
  Age: 44 Year
  Sex: Male

DRUGS (11)
  1. TIGECYCLINE [Suspect]
     Active Substance: TIGECYCLINE
     Indication: Acinetobacter test positive
     Dosage: 100 MILLIGRAM, Q.12H
     Route: 042
  2. TIGECYCLINE [Suspect]
     Active Substance: TIGECYCLINE
     Dosage: 50 MILLIGRAM, Q.12H
     Route: 042
  3. TIGECYCLINE [Suspect]
     Active Substance: TIGECYCLINE
     Dosage: 100 MILLIGRAM, Q.12H
     Route: 042
  4. CEFIDEROCOL [Suspect]
     Active Substance: CEFIDEROCOL
     Indication: Acinetobacter test positive
     Dosage: UNK
     Route: 065
  5. ERAVACYCLINE [Suspect]
     Active Substance: ERAVACYCLINE
     Indication: Acinetobacter test positive
     Dosage: UNK
     Route: 065
  6. MEROPENEM [Suspect]
     Active Substance: MEROPENEM
     Indication: Acinetobacter test positive
     Dosage: 2 GRAM, Q.12H, EXTENDED INFUSION OVER 3 HOURS
     Route: 065
  7. POLYMYXIN B [Suspect]
     Active Substance: POLYMYXIN B
     Indication: Acinetobacter test positive
     Dosage: UNK UNK, Q.12H (15,000 INTERNATIONAL UNIT PER KILOGRAM)
     Route: 065
  8. CEFTAZIDIME [Suspect]
     Active Substance: CEFTAZIDIME
     Indication: Acinetobacter test positive
     Dosage: UNK
     Route: 065
  9. AZTREONAM [Suspect]
     Active Substance: AZTREONAM
     Indication: Acinetobacter test positive
     Dosage: UNK
     Route: 065
  10. MINOCYCLINE [Suspect]
     Active Substance: MINOCYCLINE HYDROCHLORIDE
     Indication: Acinetobacter test positive
     Dosage: 200 MILLIGRAM, BID
     Route: 042
  11. AVIBACTAM [Suspect]
     Active Substance: AVIBACTAM
     Indication: Acinetobacter test positive
     Dosage: UNK
     Route: 065

REACTIONS (2)
  - Thrombocytopenia [Unknown]
  - Hepatic enzyme increased [Unknown]
